FAERS Safety Report 11289370 (Version 1)
Quarter: 2015Q3

REPORT INFORMATION
  Report Type: Spontaneous
  Country: GB (occurrence: GB)
  Receive Date: 20150721
  Receipt Date: 20150721
  Transmission Date: 20151125
  Serious: Yes (Life-Threatening, Disabling, Other)
  Sender: FDA-Public Use
  Company Number: GB-TEVA-578451ACC

PATIENT
  Age: 19 Year
  Sex: Male
  Weight: 71.2 kg

DRUGS (16)
  1. FOLINIC ACID [Concomitant]
     Active Substance: LEUCOVORIN
  2. LORAZEPAM. [Concomitant]
     Active Substance: LORAZEPAM
  3. DOXORUBICIN [Suspect]
     Active Substance: DOXORUBICIN
     Indication: OSTEOSARCOMA
  4. CISPLATIN. [Concomitant]
     Active Substance: CISPLATIN
     Indication: OSTEOSARCOMA
  5. MIFAMURTIDE SODIUM [Interacting]
     Active Substance: MIFAMURTIDE
     Indication: ADJUVANT THERAPY
     Route: 042
     Dates: start: 20150428, end: 20150701
  6. MEROPENEM. [Concomitant]
     Active Substance: MEROPENEM
  7. ONDANSETRON [Concomitant]
     Active Substance: ONDANSETRON
  8. PARACETAMOL [Concomitant]
     Active Substance: ACETAMINOPHEN
  9. TEICOPLANIN [Concomitant]
     Active Substance: TEICOPLANIN
  10. APREPITANT. [Concomitant]
     Active Substance: APREPITANT
  11. CYCLIZINE [Concomitant]
     Active Substance: CYCLIZINE
  12. DEXAMETHASONE SODIUM PHOSPHATE. [Concomitant]
     Active Substance: DEXAMETHASONE SODIUM PHOSPHATE
  13. LEVOMEPROMAZINE [Concomitant]
     Active Substance: LEVOMEPROMAZINE
  14. MIFAMURTIDE SODIUM [Interacting]
     Active Substance: MIFAMURTIDE
     Indication: ADJUVANT THERAPY
     Route: 042
     Dates: start: 20150205, end: 20150428
  15. IBUPROFEN. [Concomitant]
     Active Substance: IBUPROFEN
  16. METHOTREXATE [Concomitant]
     Active Substance: METHOTREXATE
     Indication: OSTEOSARCOMA

REACTIONS (3)
  - Cardiac function test abnormal [Not Recovered/Not Resolved]
  - Cardiotoxicity [Not Recovered/Not Resolved]
  - Drug interaction [Unknown]

NARRATIVE: CASE EVENT DATE: 20150603
